FAERS Safety Report 14618744 (Version 1)
Quarter: 2018Q1

REPORT INFORMATION
  Report Type: Report from Study
  Country: CA (occurrence: CA)
  Receive Date: 20180309
  Receipt Date: 20180309
  Transmission Date: 20180509
  Serious: Yes (Hospitalization)
  Sender: FDA-Public Use
  Company Number: CA-JNJFOC-20180308785

PATIENT
  Age: 61 Year
  Sex: Male
  Weight: 60.5 kg

DRUGS (1)
  1. STELARA [Suspect]
     Active Substance: USTEKINUMAB
     Indication: CROHN^S DISEASE
     Route: 058

REACTIONS (4)
  - Dehydration [Recovering/Resolving]
  - Adverse drug reaction [Recovering/Resolving]
  - Fistula [Recovering/Resolving]
  - Colectomy [Recovered/Resolved]

NARRATIVE: CASE EVENT DATE: 20171121
